FAERS Safety Report 5386673-8 (Version None)
Quarter: 2007Q3

REPORT INFORMATION
  Report Type: 
  Country: None (occurrence: None)
  Receive Date: 20070713
  Receipt Date: 20070629
  Transmission Date: 20080115
  Serious: Yes (Other)
  Sender: FDA-Public Use
  Company Number: NO-JNJFOC-20070700132

PATIENT
  Age: 11 Year
  Sex: Female
  Weight: 46 kg

DRUGS (2)
  1. REMICADE [Suspect]
     Route: 042
  2. REMICADE [Suspect]
     Indication: CROHN'S DISEASE
     Route: 042

REACTIONS (6)
  - DYSPNOEA [None]
  - INFUSION RELATED REACTION [None]
  - PALLOR [None]
  - TACHYCARDIA [None]
  - THROAT TIGHTNESS [None]
  - VOMITING [None]
